FAERS Safety Report 6058070-3 (Version None)
Quarter: 2009Q1

REPORT INFORMATION
  Report Type: 
  Country: None (occurrence: None)
  Receive Date: 20090127
  Receipt Date: 20090119
  Transmission Date: 20090719
  Serious: Yes (Other)
  Sender: FDA-Public Use
  Company Number: CHPA2009US00841

PATIENT
  Age: 38 Year
  Sex: Female

DRUGS (1)
  1. NICOTINE [Suspect]
     Indication: SMOKING CESSATION THERAPY
     Dosage: UNK, UNK, TRANSDERMAL
     Route: 062
     Dates: start: 20090117

REACTIONS (3)
  - AGITATION [None]
  - ANXIETY [None]
  - FEAR OF EATING [None]
